FAERS Safety Report 9692917 (Version 1)
Quarter: 2013Q4

REPORT INFORMATION
  Report Type: Spontaneous
  Country: US (occurrence: US)
  Receive Date: 20131118
  Receipt Date: 20131118
  Transmission Date: 20140711
  Serious: No
  Sender: FDA-Public Use
  Company Number: US-GLAXOSMITHKLINE-A1004748A

PATIENT
  Age: 67 Year
  Sex: Male

DRUGS (7)
  1. COREG CR [Suspect]
     Indication: PRODUCT USED FOR UNKNOWN INDICATION
     Dosage: 10MG PER DAY
     Route: 048
  2. PRO-AIR [Concomitant]
  3. SPIRIVA [Concomitant]
  4. XOPENEX [Concomitant]
  5. DULERA [Concomitant]
  6. DALIRESP [Concomitant]
  7. OXYGEN [Concomitant]

REACTIONS (5)
  - Diarrhoea [Not Recovered/Not Resolved]
  - Dizziness [Unknown]
  - Dry mouth [Unknown]
  - Pruritus [Unknown]
  - Skin burning sensation [Unknown]
